FAERS Safety Report 7978123-X (Version None)
Quarter: 2011Q4

REPORT INFORMATION
  Report Type: 
  Country: None (occurrence: None)
  Receive Date: 20111212
  Receipt Date: 20111212
  Transmission Date: 20120403
  Serious: Yes (Other)
  Sender: FDA-Public Use
  Company Number: None

PATIENT
  Age: 55 Year
  Sex: Male

DRUGS (5)
  1. PROCRIT [Concomitant]
  2. FLONASE [Concomitant]
  3. REVLIMID [Suspect]
     Indication: MYELODYSPLASTIC SYNDROME
     Dosage: 25MG QDX21D/28D ORALLY
     Route: 048
     Dates: start: 20111121
  4. REVLIMID [Suspect]
     Indication: MULTIPLE MYELOMA
     Dosage: 25MG QDX21D/28D ORALLY
     Route: 048
     Dates: start: 20111121
  5. CIALIS [Concomitant]

REACTIONS (4)
  - HEADACHE [None]
  - HAEMOGLOBIN DECREASED [None]
  - RASH PRURITIC [None]
  - FATIGUE [None]
